FAERS Safety Report 4940946-9 (Version None)
Quarter: 2006Q1

REPORT INFORMATION
  Report Type: 
  Country: None (occurrence: None)
  Receive Date: 20060313
  Receipt Date: 20060123
  Transmission Date: 20060701
  Serious: Yes (Death, Hospitalization, Other)
  Sender: FDA-Public Use
  Company Number: TR-NOVOPROD-250251

PATIENT
  Age: 75 Year
  Sex: Female
  Weight: 80 kg

DRUGS (3)
  1. NOVOSEVEN [Suspect]
     Indication: PELVIC HAEMORRHAGE
     Dosage: 7.2 MG, UNK
     Route: 042
     Dates: start: 20060108, end: 20060108
  2. NOVOSEVEN [Suspect]
     Dosage: 31.2 MG, UNK
     Dates: start: 20060109, end: 20060109
  3. NORVASK [Concomitant]
     Dosage: 5 MG, BID

REACTIONS (2)
  - ABDOMINAL SEPSIS [None]
  - GASTROINTESTINAL NECROSIS [None]
